FAERS Safety Report 7599758-2 (Version None)
Quarter: 2011Q2

REPORT INFORMATION
  Report Type: 
  Country: None (occurrence: None)
  Receive Date: 20110629
  Receipt Date: 20110614
  Transmission Date: 20111010
  Serious: Yes (Hospitalization)
  Sender: FDA-Public Use
  Company Number: TCI2011A02008

PATIENT
  Age: 73 Year
  Sex: Male

DRUGS (4)
  1. INSULINS AND ANALOGUES [Concomitant]
  2. CALCIUM CHANNEL BLOCKERS [Concomitant]
  3. ACE INHIBITOR NOS [Concomitant]
  4. ACTOS [Suspect]
     Indication: TYPE 2 DIABETES MELLITUS
     Dosage: 15 MG (15 MG, 1 D) PER ORAL
     Route: 048
     Dates: start: 20081204, end: 20100830

REACTIONS (1)
  - LUNG NEOPLASM [None]
